FAERS Safety Report 8259433-8 (Version None)
Quarter: 2012Q2

REPORT INFORMATION
  Report Type: 
  Country: None (occurrence: None)
  Receive Date: 20120404
  Receipt Date: 20120326
  Transmission Date: 20120825
  Serious: Yes (Death, Hospitalization)
  Sender: FDA-Public Use
  Company Number: PL-ACTELION-A-CH2012-63190

PATIENT
  Sex: Female

DRUGS (11)
  1. HYGROTON [Concomitant]
  2. CORDARONE [Concomitant]
  3. MAGNESIUM W/VITAMIN B6 [Concomitant]
  4. TRIFAS [Concomitant]
  5. INSPRA [Concomitant]
  6. VIVACE [Concomitant]
  7. DIGOXIN [Concomitant]
  8. TRACLEER [Suspect]
     Indication: PULMONARY ARTERIAL HYPERTENSION
     Dosage: 125 MG, BID
     Route: 048
     Dates: start: 20100624, end: 20120210
  9. ALLOPURINOL [Concomitant]
  10. POTASSIUM CHLORIDE [Concomitant]
  11. SINTROM [Concomitant]

REACTIONS (2)
  - DISEASE PROGRESSION [None]
  - PULMONARY ARTERIAL HYPERTENSION [None]
